FAERS Safety Report 16207147 (Version 2)
Quarter: 2019Q3

REPORT INFORMATION
  Report Type: Report from Study
  Country: JP (occurrence: JP)
  Receive Date: 20190417
  Receipt Date: 20190701
  Transmission Date: 20191004
  Serious: Yes (Life-Threatening, Other)
  Sender: FDA-Public Use
  Company Number: JP-ROCHE-2305037

PATIENT

DRUGS (2)
  1. RITUXIMAB. [Suspect]
     Active Substance: RITUXIMAB
     Indication: ANTI-NEUTROPHIL CYTOPLASMIC ANTIBODY POSITIVE VASCULITIS
     Route: 041
  2. PREDNISOLONE. [Concomitant]
     Active Substance: PREDNISOLONE
     Indication: ANTI-NEUTROPHIL CYTOPLASMIC ANTIBODY POSITIVE VASCULITIS
     Route: 065

REACTIONS (9)
  - Hepatitis B reactivation [Unknown]
  - Bacterial infection [Unknown]
  - Cytomegalovirus test positive [Unknown]
  - Infection [Unknown]
  - Herpes zoster [Unknown]
  - Pneumocystis jirovecii pneumonia [Unknown]
  - Fungal infection [Unknown]
  - Neoplasm malignant [Unknown]
  - Lung infection [Unknown]
